FAERS Safety Report 23273503 (Version 4)
Quarter: 2024Q1

REPORT INFORMATION
  Report Type: Spontaneous
  Country: FR (occurrence: FR)
  Receive Date: 20231207
  Receipt Date: 20240228
  Transmission Date: 20240409
  Serious: Yes (Hospitalization, Other)
  Sender: FDA-Public Use
  Company Number: None

PATIENT
  Age: 34 Year
  Sex: Female

DRUGS (24)
  1. ADRENALIN [Suspect]
     Active Substance: EPINEPHRINE
     Indication: Anaesthesia
     Dosage: 1 DF, UNK
     Route: 008
  2. ADRENALIN [Suspect]
     Active Substance: EPINEPHRINE
     Dosage: 2 MG, QD (15 ML OF LIDOCAINE 20MG/ML WITH ADRENALIN)
     Route: 008
  3. UNSPECIFIED INGREDIENT [Suspect]
     Active Substance: UNSPECIFIED INGREDIENT
     Indication: Product used for unknown indication
     Dosage: 300 MG, TOTA
     Route: 008
  4. ASPIRIN [Suspect]
     Active Substance: ASPIRIN
     Indication: Product used for unknown indication
     Dosage: UNK
     Route: 065
  5. ENOXAPARIN SODIUM [Suspect]
     Active Substance: ENOXAPARIN SODIUM
     Indication: Thrombosis prophylaxis
     Dosage: 40 MG, QD
     Route: 058
  6. KETOPROFEN [Suspect]
     Active Substance: KETOPROFEN
     Dosage: 200 MG, QD
     Route: 048
  7. KETOPROFEN [Suspect]
     Active Substance: KETOPROFEN
     Dosage: 50 MG, 6 HOUR
     Route: 048
  8. KETOPROFEN [Suspect]
     Active Substance: KETOPROFEN
     Indication: Product used for unknown indication
     Dosage: 50 MG, QID
     Route: 048
  9. KETOPROFEN [Suspect]
     Active Substance: KETOPROFEN
     Dosage: UNK
     Route: 065
  10. LIDOCAINE [Suspect]
     Active Substance: LIDOCAINE
     Dosage: 300 MG, TOTAL
     Route: 008
  11. LIDOCAINE [Suspect]
     Active Substance: LIDOCAINE
     Indication: Spinal pain
     Dosage: 15 ML, UNK
     Route: 065
  12. LIDOCAINE [Suspect]
     Active Substance: LIDOCAINE
     Indication: Anaesthesia
     Dosage: 20 MG/ML, (15 ML OF LIDOCAINE 20MG/ML WITH ADRENALIN)
     Route: 065
  13. MORPHINE [Suspect]
     Active Substance: MORPHINE
     Indication: Analgesic therapy
     Dosage: 2 MG, QID
     Route: 008
  14. NEFOPAM [Suspect]
     Active Substance: NEFOPAM
     Indication: Anaesthesia
     Dosage: DOSE DESCRIPTION : 40 MG,QID4 TIMES A DAY
     Route: 048
  15. NEFOPAM [Suspect]
     Active Substance: NEFOPAM
     Indication: Analgesic therapy
     Dosage: 40 MG, QID
     Route: 065
  16. NEFOPAM [Suspect]
     Active Substance: NEFOPAM
     Indication: Thrombosis prophylaxis
  17. ACETAMINOPHEN [Suspect]
     Active Substance: ACETAMINOPHEN
     Indication: Analgesic therapy
     Dosage: 1 G, QID
     Route: 048
  18. ACETAMINOPHEN [Suspect]
     Active Substance: ACETAMINOPHEN
     Dosage: 4 G, QID
     Route: 048
  19. ROPIVACAINE [Suspect]
     Active Substance: ROPIVACAINE
     Indication: Anaesthesia
     Dosage: 1 MG/ML, UNK (20 ML OF A SOLUTION OF 1 MG/ML ROPIVACAINE AND 0.25 ?G/ML SUFENTANIL)
     Route: 008
  20. ROPIVACAINE [Suspect]
     Active Substance: ROPIVACAINE
     Indication: Epidural analgesia
  21. ROPIVACAINE [Suspect]
     Active Substance: ROPIVACAINE
     Indication: Pain
  22. ROPIVACAINE [Suspect]
     Active Substance: ROPIVACAINE
     Indication: Spinal pain
  23. SUFENTANIL [Suspect]
     Active Substance: SUFENTANIL
     Indication: Anaesthesia
     Dosage: 0.25 UG/ML, UNK (20 ML OF A SOLUTION OF 1 MG/ML ROPIVACAINE AND 0.25 ?G/ML SUFENTANIL)
     Route: 008
  24. SUFENTANIL [Suspect]
     Active Substance: SUFENTANIL
     Indication: Spinal pain

REACTIONS (13)
  - Spinal epidural haemorrhage [Recovered/Resolved]
  - Gait disturbance [Recovered/Resolved]
  - Peripheral nerve injury [Recovered/Resolved]
  - Paraesthesia [Recovered/Resolved]
  - Epistaxis [Unknown]
  - Nervous system disorder [Recovered/Resolved]
  - Neuropathy peripheral [Recovered/Resolved]
  - Foetal heart rate abnormal [Recovering/Resolving]
  - Epidural haemorrhage [Recovered/Resolved]
  - Epidural analgesia [Recovering/Resolving]
  - Live birth [Unknown]
  - Maternal exposure during pregnancy [Recovered/Resolved]
  - Product use issue [Unknown]
